FAERS Safety Report 5095894-3 (Version None)
Quarter: 2006Q3

REPORT INFORMATION
  Report Type: 
  Country: None (occurrence: None)
  Receive Date: 20060727
  Receipt Date: 20060621
  Transmission Date: 20061208
  Serious: No
  Sender: FDA-Public Use
  Company Number: FACT0600283

PATIENT
  Age: 57 Year
  Sex: Female

DRUGS (2)
  1. FACTIVE [Suspect]
     Indication: RESPIRATORY TRACT INFECTION BACTERIAL
     Dosage: SEE IMAGE
     Route: 048
     Dates: start: 20060606, end: 20060610
  2. FACTIVE [Suspect]
     Indication: RESPIRATORY TRACT INFECTION BACTERIAL
     Dosage: SEE IMAGE
     Route: 048
     Dates: start: 20060613, end: 20060614

REACTIONS (3)
  - DRUG INEFFECTIVE [None]
  - PALPITATIONS [None]
  - RASH [None]
